FAERS Safety Report 9179231 (Version 1)
Quarter: 2012Q4

REPORT INFORMATION
  Report Type: 
  Country: US (occurrence: US)
  Receive Date: 20121029
  Receipt Date: 20121029
  Transmission Date: 20130627
  Serious: No
  Sender: FDA-Public Use
  Company Number: US-B.I. PHARMACEUTICALS,INC./RIDGEFIELD-2012-BP-26482BP

PATIENT
  Age: 72 None
  Sex: Female
  Weight: 79 kg

DRUGS (6)
  1. PRADAXA [Suspect]
     Indication: ATRIAL FIBRILLATION
     Dosage: 300 mg
     Route: 048
     Dates: start: 20120919, end: 20121019
  2. LOSARTAN [Concomitant]
     Dosage: 100 mg
     Route: 048
     Dates: start: 20120919
  3. FUROSEMIDE [Concomitant]
     Indication: FLUID RETENTION
     Dosage: 20 mg
     Route: 048
     Dates: start: 20120919
  4. POTASSIUM [Concomitant]
     Dosage: 10 mEq
     Route: 048
     Dates: start: 20120919
  5. AMIODARONE [Concomitant]
     Dosage: 100 mg
     Route: 048
     Dates: start: 20120919
  6. CARVEDILOL [Concomitant]
     Dosage: 25 mg
     Route: 048
     Dates: start: 20120919

REACTIONS (2)
  - Nausea [Recovered/Resolved]
  - Dizziness [Recovered/Resolved]
